FAERS Safety Report 19620777 (Version 1)
Quarter: 2021Q3

REPORT INFORMATION
  Report Type: Spontaneous
  Country: US (occurrence: US)
  Receive Date: 20210727
  Receipt Date: 20210727
  Transmission Date: 20211014
  Serious: Yes (Other)
  Sender: FDA-Public Use
  Company Number: None

PATIENT
  Age: 35 Year
  Sex: Female
  Weight: 83.55 kg

DRUGS (1)
  1. BYETTA [Suspect]
     Active Substance: EXENATIDE
     Indication: TYPE 2 DIABETES MELLITUS
     Dosage: ?          OTHER STRENGTH:10/0.04 UG/ML;?
     Dates: start: 20191127, end: 20210701

REACTIONS (4)
  - Rash pruritic [None]
  - Rash [None]
  - Erythema annulare [None]
  - Drug ineffective [None]

NARRATIVE: CASE EVENT DATE: 20200101
